FAERS Safety Report 15607797 (Version 1)
Quarter: 2018Q4

REPORT INFORMATION
  Report Type: Spontaneous
  Country: US (occurrence: US)
  Receive Date: 20181112
  Receipt Date: 20181112
  Transmission Date: 20190205
  Serious: Yes (Other)
  Sender: FDA-Public Use
  Company Number: None

PATIENT
  Age: 51 Year
  Sex: Female

DRUGS (1)
  1. REFRESH OPTIVE MEGA-3 [Suspect]
     Active Substance: CARBOXYMETHYLCELLULOSE SODIUM\GLYCERIN\POLYSORBATE 80
     Indication: DRY EYE
     Dates: start: 20181109, end: 20181112

REACTIONS (2)
  - Entropion [None]
  - Dacryostenosis acquired [None]

NARRATIVE: CASE EVENT DATE: 20181112
